FAERS Safety Report 9590474 (Version 1)
Quarter: 2013Q4

REPORT INFORMATION
  Report Type: Spontaneous
  Country: US (occurrence: US)
  Receive Date: 20131003
  Receipt Date: 20131003
  Transmission Date: 20140711
  Serious: No
  Sender: FDA-Public Use
  Company Number: US-AMGEN-USASP2012077933

PATIENT
  Age: 58 Year
  Sex: Female
  Weight: 89.34 kg

DRUGS (14)
  1. ENBREL [Suspect]
     Indication: PSORIATIC ARTHROPATHY
     Dosage: 50 MG/ML, QWK
  2. FENTANYL [Concomitant]
     Dosage: UNK
  3. CYMBALTA [Concomitant]
     Dosage: 60 MG, UNK
  4. RECLAST [Concomitant]
     Dosage: 5/100 ML, UNK
  5. LORAZEPAM [Concomitant]
     Dosage: 0.5 MG, UNK
  6. FENOFIBRATE [Concomitant]
     Dosage: 134 MG, UNK
  7. VERAPAMIL [Concomitant]
     Dosage: 120 MG, UNK
  8. AMITRIPTYLIN [Concomitant]
     Dosage: 25 MG, UNK
  9. MONTELUKAST [Concomitant]
     Dosage: 10 MG, UNK
  10. VITAMIN B [Concomitant]
     Dosage: UNK
  11. DEXILANT [Concomitant]
     Dosage: 60 MG, UNK
  12. MULTIVITAMIN                       /00097801/ [Concomitant]
     Dosage: UNK
  13. CALCIUM D                          /00944201/ [Concomitant]
     Dosage: UNK
  14. BUTRANS                            /00444001/ [Concomitant]
     Dosage: 5 MUG/HOUR, UNK

REACTIONS (3)
  - Hyperhidrosis [Unknown]
  - Adverse event [Unknown]
  - Pain [Unknown]
